FAERS Safety Report 20199397 (Version 1)
Quarter: 2021Q4

REPORT INFORMATION
  Report Type: Spontaneous
  Country: US (occurrence: None)
  Receive Date: 20211216
  Receipt Date: 20211216
  Transmission Date: 20220303
  Serious: Yes (Other)
  Sender: FDA-Public Use
  Company Number: None

PATIENT
  Age: 43 Year
  Sex: Female

DRUGS (1)
  1. REGEN-COV [Suspect]
     Active Substance: CASIRIVIMAB\IMDEVIMAB
     Route: 042

REACTIONS (5)
  - Dizziness [None]
  - Anxiety [None]
  - Hyperventilation [None]
  - Muscle spasms [None]
  - Heart rate increased [None]

NARRATIVE: CASE EVENT DATE: 20211213
